FAERS Safety Report 14209897 (Version 1)
Quarter: 2017Q4

REPORT INFORMATION
  Report Type: Spontaneous
  Country: US (occurrence: US)
  Receive Date: 20171121
  Receipt Date: 20171121
  Transmission Date: 20180321
  Serious: No
  Sender: FDA-Public Use
  Company Number: US-PFIZER INC-2017497701

PATIENT
  Age: 69 Year
  Sex: Female

DRUGS (3)
  1. GLIPIZIDE. [Concomitant]
     Active Substance: GLIPIZIDE
     Dosage: 10 MG, UNK
  2. IBRANCE [Suspect]
     Active Substance: PALBOCICLIB
     Indication: BONE CANCER
     Dosage: 100 MG, CYCLIC [TAKE 1 CAPSULE DAILY FOR 3 WEEKS ON AND 1 WEEK OFF]
     Route: 048
     Dates: start: 20171110
  3. JANUMET [Concomitant]
     Active Substance: METFORMIN HYDROCHLORIDE\SITAGLIPTIN PHOSPHATE
     Dosage: UNK [SITAGLIPTIN PHOSPHATE MONOHYDRATE: 50 MG; METFORMIN HYDROCHLORIDE: 1000 MG]

REACTIONS (1)
  - Pain [Not Recovered/Not Resolved]
